FAERS Safety Report 22896455 (Version 3)
Quarter: 2024Q2

REPORT INFORMATION
  Report Type: Spontaneous
  Country: US (occurrence: US)
  Receive Date: 20230901
  Receipt Date: 20240403
  Transmission Date: 20240715
  Serious: Yes (Hospitalization, Other)
  Sender: FDA-Public Use
  Company Number: US-PFIZER INC-US-GBT-021286

PATIENT
  Age: 21 Year
  Sex: Male
  Weight: 75.75 kg

DRUGS (3)
  1. OXBRYTA [Suspect]
     Active Substance: VOXELOTOR
     Indication: Sickle cell disease
     Dosage: 1000 MG, 1X/DAY
     Route: 048
     Dates: start: 20230209
  2. OXBRYTA [Suspect]
     Active Substance: VOXELOTOR
     Dosage: 1500 MG, 1X/DAY
     Route: 048
     Dates: start: 20230224
  3. OXBRYTA [Suspect]
     Active Substance: VOXELOTOR
     Dosage: TOOK IT ONE TIME PER DAY IN THE EVENINGS AND IT WAS THREE DOSES OF 500 MG
     Dates: start: 202305, end: 20230828

REACTIONS (7)
  - Bone infarction [Unknown]
  - Pain in extremity [Unknown]
  - White blood cell count increased [Unknown]
  - Infection [Unknown]
  - Pain [Unknown]
  - Upper respiratory tract infection [Not Recovered/Not Resolved]
  - Off label use [Unknown]

NARRATIVE: CASE EVENT DATE: 20230101
